FAERS Safety Report 8340204-9 (Version None)
Quarter: 2012Q2

REPORT INFORMATION
  Report Type: 
  Country: None (occurrence: None)
  Receive Date: 20120502
  Receipt Date: 20120502
  Transmission Date: 20120825
  Serious: Yes (Hospitalization)
  Sender: FDA-Public Use
  Company Number: None

PATIENT
  Age: 72 Year
  Sex: Female

DRUGS (9)
  1. IRSOSORBIDE [Concomitant]
  2. SIMVASTATIN [Concomitant]
  3. DIPHENHYDRAMINE HCL [Concomitant]
  4. BEMETANIDE [Concomitant]
  5. ARANESP [Suspect]
     Indication: ANAEMIA
     Dosage: 40MCG UNDER THE SKIN WEEKLY
     Route: 058
     Dates: start: 20111101
  6. NOVOLOG [Concomitant]
  7. TRAMADOL HYDROCHLORIDE [Concomitant]
  8. CARVEDILOL [Concomitant]
  9. HYDROCODONE BITARTRATE [Concomitant]

REACTIONS (2)
  - DYSPNOEA [None]
  - SWELLING [None]
